FAERS Safety Report 8167187-9 (Version None)
Quarter: 2012Q1

REPORT INFORMATION
  Report Type: 
  Country: None (occurrence: None)
  Receive Date: 20120227
  Receipt Date: 20120215
  Transmission Date: 20120608
  Serious: Yes (Other)
  Sender: FDA-Public Use
  Company Number: JP-UCBSA-034543

PATIENT
  Age: 66 Year
  Sex: Female
  Weight: 60 kg

DRUGS (6)
  1. CANDESARTAN CILEXETIL [Concomitant]
     Route: 048
     Dates: start: 20040409
  2. SUPPLEMENT (MIRACLE NONI) [Concomitant]
     Dosage: SINCE 6 MONTHS AGO
  3. DOXAZOSIN MESYLATE [Concomitant]
     Route: 048
     Dates: start: 20041111
  4. CANDESARTAN CILEXETIL [Concomitant]
     Indication: HYPERTENSION
     Route: 048
     Dates: start: 20020311, end: 20040408
  5. DOXAZOSIN MESYLATE [Concomitant]
     Indication: HYPERTENSION
     Route: 048
     Dates: start: 20041028, end: 20041110
  6. XYZAL [Suspect]
     Indication: RHINITIS ALLERGIC
     Route: 048
     Dates: start: 20110330, end: 20110601

REACTIONS (1)
  - ELECTROCARDIOGRAM QT PROLONGED [None]
